FAERS Safety Report 9256739 (Version 2)
Quarter: 2013Q2

REPORT INFORMATION
  Report Type: Spontaneous
  Country: US (occurrence: US)
  Receive Date: 20130426
  Receipt Date: 20130621
  Transmission Date: 20140414
  Serious: No
  Sender: FDA-Public Use
  Company Number: US-ASTRAZENECA-2013SE27604

PATIENT
  Age: 619 Month
  Sex: Male

DRUGS (15)
  1. NEXIUM [Suspect]
     Indication: DYSPEPSIA
     Dosage: TOOK IT FOR WEEKS AT A TIMES FOUR TIMES A DAY
     Route: 048
  2. NEXIUM [Suspect]
     Indication: GASTROOESOPHAGEAL REFLUX DISEASE
     Dosage: TOOK IT FOR WEEKS AT A TIMES FOUR TIMES A DAY
     Route: 048
  3. OXYCODONE W/APAP [Concomitant]
     Dosage: 5/325 TAB
     Dates: start: 20040730
  4. OXYCODONE W/APAP [Concomitant]
     Dosage: 5/325 TAB
     Dates: start: 20051003
  5. TIZANIDINE HCL [Concomitant]
     Dates: start: 20081111
  6. GABAPENTIN [Concomitant]
     Dates: start: 20090209
  7. CELEBREX [Concomitant]
     Dates: start: 20070420
  8. TRAZADONE [Concomitant]
     Dates: start: 20040828
  9. WARFARIN SODIUM [Concomitant]
     Dates: start: 20040828
  10. PSEUDOVENT [Concomitant]
     Dates: start: 20060314
  11. CITALOPRAM HBR [Concomitant]
     Dates: start: 20070507
  12. ABILIFY [Concomitant]
     Dates: start: 20070507
  13. METHOCARBAMOL [Concomitant]
     Dates: start: 20100806
  14. CEPHALEXIN [Concomitant]
     Dates: start: 20100611
  15. VITAMIN D [Concomitant]
     Dosage: 50000 UNIT

REACTIONS (8)
  - Osteoporosis [Unknown]
  - Bone disorder [Unknown]
  - Multiple fractures [Unknown]
  - Mental disorder [Unknown]
  - Amnesia [Unknown]
  - Anxiety [Unknown]
  - Confusional state [Unknown]
  - Bipolar disorder [Unknown]
